FAERS Safety Report 4749258-X (Version None)
Quarter: 2005Q3

REPORT INFORMATION
  Report Type: 
  Country: None (occurrence: None)
  Receive Date: 20050817
  Receipt Date: 20050805
  Transmission Date: 20060218
  Serious: Yes (Hospitalization, Other)
  Sender: FDA-Public Use
  Company Number: 2005FR-00220

PATIENT
  Age: 75 Year

DRUGS (14)
  1. IBUPROFEN [Suspect]
     Indication: OSTEOPOROSIS PROPHYLAXIS
     Dosage: 400, TDS, ORAL
     Route: 048
     Dates: start: 20050702, end: 20050711
  2. ALENDRONATE [Concomitant]
  3. PREDNISOLONE [Concomitant]
  4. PHENOBARBITONE [Concomitant]
  5. MYSOLINE [Concomitant]
  6. TIOTROPIUM BROMIDE [Concomitant]
  7. ALBUTEROL SULFATE HFA [Concomitant]
  8. ORAMORPH SR [Concomitant]
  9. QUININE SULFATE [Concomitant]
  10. ADCAL-D3 [Concomitant]
  11. SYMBICORT [Concomitant]
  12. PARACETAMOL [Concomitant]
  13. LACTULOSE [Concomitant]
  14. ENOXAPARAIN [Concomitant]

REACTIONS (2)
  - OESOPHAGEAL ULCER [None]
  - REFLUX OESOPHAGITIS [None]
